FAERS Safety Report 5746180-7 (Version None)
Quarter: 2008Q2

REPORT INFORMATION
  Report Type: 
  Country: None (occurrence: None)
  Receive Date: 20080519
  Receipt Date: 20080125
  Transmission Date: 20081010
  Serious: No
  Sender: FDA-Public Use
  Company Number: TPA2008A00125

PATIENT
  Age: 4 Decade
  Sex: Female
  Weight: 63.5036 kg

DRUGS (2)
  1. ROZEREM [Suspect]
     Indication: INSOMNIA
     Dosage: 8 MG, QHS, PER ORAL
     Route: 048
     Dates: start: 20080101, end: 20080101
  2. EFFEXOR [Suspect]
     Indication: DEPRESSION
     Dosage: PER ORAL
     Route: 048
     Dates: start: 20080101

REACTIONS (2)
  - HEADACHE [None]
  - NAUSEA [None]
